FAERS Safety Report 10161355 (Version 1)
Quarter: 2014Q2

REPORT INFORMATION
  Report Type: Report from Study
  Country: FR (occurrence: FR)
  Receive Date: 20140509
  Receipt Date: 20140509
  Transmission Date: 20141212
  Serious: Yes (Hospitalization)
  Sender: FDA-Public Use
  Company Number: FR-ROCHE-1396303

PATIENT
  Sex: Female

DRUGS (16)
  1. RITUXIMAB [Suspect]
     Indication: RHEUMATOID ARTHRITIS
     Dosage: FIRST INFUSION DAY1 (D1)
     Route: 041
     Dates: start: 20071001
  2. RITUXIMAB [Suspect]
     Dosage: D15
     Route: 041
     Dates: start: 20071022
  3. RITUXIMAB [Suspect]
     Dosage: D1
     Route: 041
     Dates: start: 20080519
  4. RITUXIMAB [Suspect]
     Dosage: D15
     Route: 041
     Dates: start: 20080602
  5. RITUXIMAB [Suspect]
     Dosage: D1
     Route: 041
     Dates: start: 20090330
  6. RITUXIMAB [Suspect]
     Dosage: D15
     Route: 041
     Dates: start: 20090414
  7. RITUXIMAB [Suspect]
     Dosage: D1
     Route: 041
     Dates: start: 20091113
  8. RITUXIMAB [Suspect]
     Dosage: D15
     Route: 041
     Dates: start: 20091127
  9. RITUXIMAB [Suspect]
     Dosage: D1
     Route: 041
     Dates: start: 20100617
  10. RITUXIMAB [Suspect]
     Dosage: D15
     Route: 041
     Dates: start: 20100701
  11. RITUXIMAB [Suspect]
     Dosage: D1
     Route: 041
     Dates: start: 20110509
  12. RITUXIMAB [Suspect]
     Dosage: D15
     Route: 041
     Dates: start: 20110525
  13. RITUXIMAB [Suspect]
     Dosage: D1
     Route: 041
     Dates: start: 20120525
  14. RITUXIMAB [Suspect]
     Dosage: D15
     Route: 041
     Dates: start: 20120608
  15. METHOTREXATE [Concomitant]
     Route: 065
  16. METHOTREXATE [Concomitant]
     Route: 065

REACTIONS (4)
  - Cholelithiasis [Recovered/Resolved]
  - Synovitis [Not Recovered/Not Resolved]
  - Psoriasis [Not Recovered/Not Resolved]
  - Gastroenteritis [Recovered/Resolved]
